FAERS Safety Report 3446035 (Version 4)
Quarter: 2020Q3

REPORT INFORMATION
  Report Type: Spontaneous
  Country: IE (occurrence: None)
  Receive Date: 20000317
  Receipt Date: 20000728
  Transmission Date: 20201105
  Serious: Yes (Life-Threatening, Hospitalization)
  Sender: FDA-Public Use
  Company Number: WAES 00035106

PATIENT
  Sex: Male

DRUGS (5)
  1. ATROPINE. [Suspect]
     Active Substance: ATROPINE
     Dosage: IV
     Route: 042
  2. EPHEDRINE. [Suspect]
     Active Substance: EPHEDRINE
     Indication: HYPERTENSION
     Dosage: 30 MG IV
     Route: 042
  3. ALDOMET [Suspect]
     Active Substance: METHYLDOPA
     Indication: HYPERTENSION
     Dosage: UNK PO
     Route: 048
  4. FENTANYL TRANSDERMAL SYSTEM [Suspect]
     Active Substance: FENTANYL
     Dosage: IV
     Route: 042
  5. PROPOFOL. [Suspect]
     Active Substance: PROPOFOL
     Indication: ANAESTHESIA
     Dosage: IV
     Route: 042

REACTIONS (5)
  - Drug interaction [None]
  - Hypotension [None]
  - Arrhythmia [None]
  - Bradycardia [None]
  - Ventricular fibrillation [None]
